FAERS Safety Report 5788594-5 (Version None)
Quarter: 2008Q2

REPORT INFORMATION
  Report Type: 
  Country: None (occurrence: None)
  Receive Date: 20080626
  Receipt Date: 20080326
  Transmission Date: 20081010
  Serious: No
  Sender: FDA-Public Use
  Company Number: US-BAYER-200818042NA

PATIENT
  Age: 18 Year
  Sex: Female

DRUGS (1)
  1. YASMIN [Suspect]
     Indication: POLYCYSTIC OVARIES
     Route: 048
     Dates: start: 20080316, end: 20080317

REACTIONS (5)
  - DYSPHONIA [None]
  - GASTRIC DISORDER [None]
  - MENSTRUAL DISORDER [None]
  - RASH [None]
  - WITHDRAWAL BLEED [None]
